FAERS Safety Report 8111436-X (Version None)
Quarter: 2012Q1

REPORT INFORMATION
  Report Type: 
  Country: None (occurrence: None)
  Receive Date: 20120202
  Receipt Date: 20120202
  Transmission Date: 20120608
  Serious: Yes (Death)
  Sender: FDA-Public Use
  Company Number: None

PATIENT
  Age: 77 Year
  Sex: Male
  Weight: 66.2252 kg

DRUGS (1)
  1. ARANESP [Suspect]
     Indication: ANAEMIA
     Dates: start: 20110101, end: 20110117

REACTIONS (3)
  - PNEUMONIA [None]
  - CARDIAC ARREST [None]
  - CARDIAC DISORDER [None]
